FAERS Safety Report 5675380-X (Version None)
Quarter: 2008Q2

REPORT INFORMATION
  Report Type: 
  Country: None (occurrence: None)
  Receive Date: 20080307
  Receipt Date: 20070702
  Transmission Date: 20081010
  Serious: Yes (Hospitalization)
  Sender: FDA-Public Use
  Company Number: US200704004981

PATIENT
  Age: 50 Year
  Sex: Female
  Weight: 95.2 kg

DRUGS (4)
  1. GEMZAR [Suspect]
     Indication: BILE DUCT CANCER
     Dosage: 1000 MG/M2, OTHER, INTRAVENOUS
     Route: 042
     Dates: start: 20060825, end: 20070302
  2. INSULIN (INSULIN) [Concomitant]
  3. ENALAPRIL MALEATE [Concomitant]
  4. METOPROLOL TARTRATE [Concomitant]

REACTIONS (4)
  - BLOOD AMYLASE INCREASED [None]
  - HAEMOLYTIC URAEMIC SYNDROME [None]
  - LIPASE INCREASED [None]
  - TRANSAMINASES INCREASED [None]
